FAERS Safety Report 6334275-9 (Version None)
Quarter: 2009Q3

REPORT INFORMATION
  Report Type: 
  Country: None (occurrence: None)
  Receive Date: 20090829
  Receipt Date: 20090811
  Transmission Date: 20100115
  Serious: No
  Sender: FDA-Public Use
  Company Number: US-ABBOTT-09P-163-0590713-00

PATIENT
  Sex: Female
  Weight: 64.468 kg

DRUGS (8)
  1. SIMCOR [Suspect]
     Indication: HIGH DENSITY LIPOPROTEIN DECREASED
     Dates: start: 20090810, end: 20090810
  2. SIMCOR [Suspect]
     Indication: LOW DENSITY LIPOPROTEIN INCREASED
  3. SIMCOR [Suspect]
     Indication: BLOOD TRIGLYCERIDES INCREASED
  4. ADVIL [Concomitant]
     Indication: PROPHYLAXIS
  5. METFORMIN HCL [Concomitant]
     Indication: DRUG USE FOR UNKNOWN INDICATION
  6. ACYCLOVIR [Concomitant]
     Indication: DRUG USE FOR UNKNOWN INDICATION
  7. MULTIVITAMIN WITHOUT NIACIN [Concomitant]
     Indication: DRUG USE FOR UNKNOWN INDICATION
  8. PERMADINE [Concomitant]
     Indication: TREMOR

REACTIONS (4)
  - ERYTHEMA [None]
  - PAIN [None]
  - PRURITUS [None]
  - RASH PAPULAR [None]
